FAERS Safety Report 18549999 (Version 1)
Quarter: 2020Q4

REPORT INFORMATION
  Report Type: Spontaneous
  Country: JP (occurrence: JP)
  Receive Date: 20201126
  Receipt Date: 20201126
  Transmission Date: 20210114
  Serious: Yes (Life-Threatening, Other)
  Sender: FDA-Public Use
  Company Number: JP-CHEPLA-C20203514

PATIENT
  Age: 87 Year
  Sex: Female

DRUGS (4)
  1. TULOBUTEROL (TULOBUTEROL) CUTANEOUS PATCH [Concomitant]
     Route: 065
  2. DENOSINE FOR I.V.INFUSION 500MG (GANCICLOVIR) [Suspect]
     Active Substance: GANCICLOVIR
     Indication: CYTOMEGALOVIRUS ENTEROCOLITIS
     Dosage: 125 MILLIGRAM, QD
     Route: 041
     Dates: start: 20200930, end: 20201005
  3. MIYA BM (CLOSTRIDIUM BUTYRICUM) [Concomitant]
     Route: 065
  4. ELIQUIS [Concomitant]
     Active Substance: APIXABAN
     Route: 065

REACTIONS (1)
  - Altered state of consciousness [Recovering/Resolving]

NARRATIVE: CASE EVENT DATE: 20200930
